FAERS Safety Report 12658682 (Version 1)
Quarter: 2016Q3

REPORT INFORMATION
  Report Type: Spontaneous
  Country: US (occurrence: None)
  Receive Date: 20160816
  Receipt Date: 20160816
  Transmission Date: 20161109
  Serious: Yes (Hospitalization)
  Sender: FDA-Public Use
  Company Number: None

PATIENT
  Age: 71 Year
  Sex: Male
  Weight: 59.1 kg

DRUGS (2)
  1. IRINOTECAN [Suspect]
     Active Substance: IRINOTECAN
     Indication: METABOLIC ACIDOSIS
     Dosage: 190 MG OTHER IV
     Route: 042
     Dates: start: 20151229, end: 20160301
  2. FLUOROURACIL. [Suspect]
     Active Substance: FLUOROURACIL
     Indication: DIARRHOEA
     Dosage: 5610 MG OTHER IV
     Route: 042
     Dates: start: 20151229, end: 20160302

REACTIONS (4)
  - Diarrhoea [None]
  - Blood urea increased [None]
  - Metabolic acidosis [None]
  - Blood creatinine increased [None]

NARRATIVE: CASE EVENT DATE: 20160316
